FAERS Safety Report 17192495 (Version 2)
Quarter: 2020Q1

REPORT INFORMATION
  Report Type: Spontaneous
  Country: SI (occurrence: SI)
  Receive Date: 20191223
  Receipt Date: 20200114
  Transmission Date: 20200409
  Serious: Yes (Death)
  Sender: FDA-Public Use
  Company Number: SI-ASTRAZENECA-2019SF85252

PATIENT
  Age: 57 Year
  Sex: Male

DRUGS (6)
  1. HEPARIN [Concomitant]
     Active Substance: HEPARIN SODIUM
  2. OXYGEN. [Concomitant]
     Active Substance: OXYGEN
  3. ASPIRIN. [Concomitant]
     Active Substance: ASPIRIN
  4. MORPHINE [Concomitant]
     Active Substance: MORPHINE
  5. BRILIQUE [Suspect]
     Active Substance: TICAGRELOR
     Indication: ACUTE CORONARY SYNDROME
     Route: 048
     Dates: start: 20160530
  6. NITROGLYCERINE [Concomitant]
     Active Substance: NITROGLYCERIN
     Dosage: 4 PUFFS

REACTIONS (3)
  - Coronary artery occlusion [Fatal]
  - Product use issue [Unknown]
  - Cardiac arrest [Fatal]

NARRATIVE: CASE EVENT DATE: 201612
